FAERS Safety Report 4662002-X (Version None)
Quarter: 2005Q2

REPORT INFORMATION
  Report Type: 
  Country: None (occurrence: None)
  Receive Date: 20050512
  Receipt Date: 20050512
  Transmission Date: 20051028
  Serious: Yes (Other)
  Sender: FDA-Public Use
  Company Number: None

PATIENT

DRUGS (1)
  1. GAMMAGARD [Suspect]
     Indication: IMMUNE SYSTEM DISORDER
     Dosage: 10 GRAM BOTTLE

REACTIONS (1)
  - PHARMACEUTICAL PRODUCT COMPLAINT [None]
